FAERS Safety Report 15437828 (Version 1)
Quarter: 2018Q3

REPORT INFORMATION
  Report Type: Spontaneous
  Country: US (occurrence: US)
  Receive Date: 20180927
  Receipt Date: 20180927
  Transmission Date: 20181010
  Serious: No
  Sender: FDA-Public Use
  Company Number: US-CELGENEUS-USA-20180909617

PATIENT
  Age: 69 Year
  Sex: Male

DRUGS (10)
  1. MINOXIDIL. [Concomitant]
     Active Substance: MINOXIDIL
     Indication: PRODUCT USED FOR UNKNOWN INDICATION
     Dosage: 10 MILLIGRAM
     Route: 048
     Dates: start: 20180911
  2. OMEPRAZOLE. [Concomitant]
     Active Substance: OMEPRAZOLE
     Indication: GASTROOESOPHAGEAL REFLUX DISEASE
  3. ASPIRIN EC [Concomitant]
     Active Substance: ASPIRIN
     Indication: PLASMA CELL MYELOMA
     Dosage: 81 MILLIGRAM
     Route: 048
  4. REVLIMID [Suspect]
     Active Substance: LENALIDOMIDE
     Dosage: 10 MILLIGRAM
     Route: 048
     Dates: start: 20180113, end: 20180918
  5. DEXAMETHASONE. [Concomitant]
     Active Substance: DEXAMETHASONE
     Indication: PLASMA CELL MYELOMA
     Dosage: 4 MILLIGRAM
     Route: 048
     Dates: start: 20180411
  6. GABAPENTIN. [Concomitant]
     Active Substance: GABAPENTIN
     Indication: NEUROPATHY PERIPHERAL
     Dosage: 300 MILLIGRAM
     Route: 048
     Dates: start: 20180109
  7. REVLIMID [Suspect]
     Active Substance: LENALIDOMIDE
     Dosage: 10 MILLIGRAM
     Route: 048
     Dates: start: 201809
  8. OMEPRAZOLE. [Concomitant]
     Active Substance: OMEPRAZOLE
     Indication: OESOPHAGITIS
     Dosage: 20 MILLIGRAM
     Route: 048
     Dates: start: 20180421
  9. REVLIMID [Suspect]
     Active Substance: LENALIDOMIDE
     Indication: PLASMA CELL MYELOMA
     Dosage: 10 MILLIGRAM
     Route: 048
     Dates: start: 201711
  10. FERROUS GLUCONATE [Concomitant]
     Active Substance: FERROUS GLUCONATE
     Indication: MINERAL SUPPLEMENTATION
     Dosage: 324 MILLIGRAM
     Route: 048
     Dates: start: 20180627, end: 20180830

REACTIONS (1)
  - Sinus disorder [Recovering/Resolving]

NARRATIVE: CASE EVENT DATE: 201808
